FAERS Safety Report 17688396 (Version 1)
Quarter: 2020Q2

REPORT INFORMATION
  Report Type: Other
  Country: AU (occurrence: AU)
  Receive Date: 20200421
  Receipt Date: 20200421
  Transmission Date: 20200714
  Serious: Yes (Life-Threatening, Other)
  Sender: FDA-Public Use
  Company Number: AU-GE HEALTHCARE LIFE SCIENCES-2020CSU001620

PATIENT

DRUGS (4)
  1. GADOVIST [Suspect]
     Active Substance: GADOBUTROL
  2. CLARISCAN [Suspect]
     Active Substance: GADOTERATE MEGLUMINE
     Indication: DIAGNOSTIC PROCEDURE
     Dosage: UNK UNK, SINGLE
     Route: 065
  3. GADOBUTROL. [Suspect]
     Active Substance: GADOBUTROL
  4. CLARISCAN [Suspect]
     Active Substance: GADOTERATE MEGLUMINE
     Indication: PRODUCT USED FOR UNKNOWN INDICATION

REACTIONS (17)
  - Gadolinium deposition disease [Unknown]
  - Anaphylactic reaction [Unknown]
  - Respiratory failure [Unknown]
  - Hepatic steatosis [Unknown]
  - Anxiety [Unknown]
  - Hypertrophy [Unknown]
  - Arthralgia [Unknown]
  - Amnesia [Unknown]
  - Visual impairment [Unknown]
  - Fatigue [Unknown]
  - Acute kidney injury [Unknown]
  - Muscle spasms [Unknown]
  - Pancreatitis [Unknown]
  - Peripheral artery occlusion [Unknown]
  - Alopecia [Unknown]
  - Dry eye [Unknown]
  - Myalgia [Unknown]
